FAERS Safety Report 23756034 (Version 2)
Quarter: 2025Q1

REPORT INFORMATION
  Report Type: Spontaneous
  Country: US (occurrence: US)
  Receive Date: 20240418
  Receipt Date: 20250128
  Transmission Date: 20250409
  Serious: No
  Sender: MERCK
  Company Number: US-009507513-2403USA006526

PATIENT
  Sex: Male

DRUGS (1)
  1. KEYTRUDA [Suspect]
     Active Substance: PEMBROLIZUMAB
     Indication: Bladder transitional cell carcinoma

REACTIONS (1)
  - Product use issue [Unknown]
